FAERS Safety Report 9375587 (Version 1)
Quarter: 2013Q2

REPORT INFORMATION
  Report Type: Spontaneous
  Country: GB (occurrence: GB)
  Receive Date: 20130628
  Receipt Date: 20130628
  Transmission Date: 20140414
  Serious: Yes (Other)
  Sender: FDA-Public Use
  Company Number: GB-BAYER-2013-078122

PATIENT
  Sex: Female

DRUGS (1)
  1. CANESTEN 200 MG PESSARY [Suspect]
     Indication: VULVOVAGINAL CANDIDIASIS

REACTIONS (1)
  - Haemorrhage [None]
